FAERS Safety Report 18759663 (Version 1)
Quarter: 2021Q1

REPORT INFORMATION
  Report Type: Spontaneous
  Country: US (occurrence: US)
  Receive Date: 20210119
  Receipt Date: 20210119
  Transmission Date: 20210419
  Serious: No
  Sender: FDA-Public Use
  Company Number: US-GALDERMA-US2020035696

PATIENT
  Age: 47 Year
  Sex: Female

DRUGS (2)
  1. NEUTROGENA FACE WASH, UNSPECIFIED [Concomitant]
     Indication: PRODUCT USED FOR UNKNOWN INDICATION
     Route: 061
  2. DIFFERIN GEL [Suspect]
     Active Substance: ADAPALENE
     Indication: ACNE
     Dosage: 0.1%
     Route: 061
     Dates: start: 201911, end: 2020

REACTIONS (5)
  - Skin exfoliation [Recovered/Resolved]
  - Chemical burn of skin [Recovered/Resolved]
  - Therapeutic response unexpected [Recovered/Resolved]
  - Application site dryness [Recovered/Resolved]
  - Acne [Recovered/Resolved]

NARRATIVE: CASE EVENT DATE: 201911
